FAERS Safety Report 8585311 (Version 3)
Quarter: 2013Q2

REPORT INFORMATION
  Report Type: Report from Study
  Country: JP (occurrence: JP)
  Receive Date: 20120530
  Receipt Date: 20130613
  Transmission Date: 20140414
  Serious: Yes (Death, Life-Threatening, Other)
  Sender: FDA-Public Use
  Company Number: PHHY2012JP012486

PATIENT
  Age: 80 Year
  Sex: Male
  Weight: 60 kg

DRUGS (7)
  1. ICL670A [Suspect]
     Indication: MYELODYSPLASTIC SYNDROME
     Dosage: 1000 MG, DAILY
     Route: 048
     Dates: start: 20090429, end: 20100217
  2. ASTOMIN [Concomitant]
     Dosage: 3 DF, UNK
     Route: 048
     Dates: start: 20090429, end: 20100217
  3. TAKEPRON [Concomitant]
     Dosage: 15 MG, UNK
     Route: 048
     Dates: start: 20090429, end: 20100217
  4. RED BLOOD CELLS, CONCENTRATED [Concomitant]
     Dosage: 2 U, EVERY WEEK
     Dates: start: 20080509, end: 20100225
  5. URIEF [Concomitant]
     Dosage: 8 MG, UNK
     Route: 048
     Dates: start: 20090429, end: 20100217
  6. DESFERAL [Concomitant]
     Indication: IRON OVERLOAD
     Dosage: 500 MG, UNK
     Route: 030
     Dates: start: 20081007, end: 20090428
  7. GRAN [Concomitant]
     Indication: MYELODYSPLASTIC SYNDROME
     Dosage: 75 UG, UNK
     Dates: start: 20100218, end: 20100220

REACTIONS (13)
  - Myelodysplastic syndrome [Fatal]
  - Lung infiltration [Fatal]
  - Pulmonary oedema [Fatal]
  - Cellulitis [Not Recovered/Not Resolved]
  - Sepsis [Not Recovered/Not Resolved]
  - Renal failure [Not Recovered/Not Resolved]
  - Pyrexia [Unknown]
  - Dehydration [Unknown]
  - Urine output decreased [Unknown]
  - Lymphadenopathy [Unknown]
  - Calcification of muscle [Unknown]
  - Pain in extremity [Unknown]
  - Abasia [Unknown]
